FAERS Safety Report 10496301 (Version 2)
Quarter: 2014Q4

REPORT INFORMATION
  Report Type: Spontaneous
  Country: NL (occurrence: NL)
  Receive Date: 20141003
  Receipt Date: 20141003
  Transmission Date: 20150528
  Serious: Yes (Life-Threatening, Hospitalization, Other)
  Sender: FDA-Public Use
  Company Number: NL-009507513-1408NLD007952

PATIENT
  Sex: Male
  Weight: 84 kg

DRUGS (7)
  1. MAXALT [Suspect]
     Active Substance: RIZATRIPTAN BENZOATE
     Indication: MIGRAINE
     Dosage: SOMETIMES 3-5 DAYS A WEEK, SOMETIMES NO USE FOR MONTHS, FROM TIME TO TIME UP TO 7 TABLETS A WEEK
     Route: 048
     Dates: start: 1998, end: 201405
  2. VALACYCLOVIR HYDROCHLORIDE. [Concomitant]
     Active Substance: VALACYCLOVIR HYDROCHLORIDE
     Indication: VIRAL INFECTION
     Dosage: ONCE
  3. RIZATRIPTAN BENZOATE. [Suspect]
     Active Substance: RIZATRIPTAN BENZOATE
     Indication: MIGRAINE
     Dosage: UNK
     Route: 048
     Dates: start: 201405, end: 201407
  4. MAXALT SMELT 5 MG [Suspect]
     Active Substance: RIZATRIPTAN BENZOATE
     Indication: MIGRAINE
     Dosage: UNK
     Route: 048
     Dates: end: 20140723
  5. FLUTICASONE PROPIONATE. [Concomitant]
     Active Substance: FLUTICASONE PROPIONATE
     Dosage: ONCE A DAY
  6. ACETAMINOPHEN. [Concomitant]
     Active Substance: ACETAMINOPHEN
     Dosage: UNK
     Route: 048
  7. ASPIRIN. [Concomitant]
     Active Substance: ASPIRIN
     Dosage: UNK;3 DAYS (WEDNESDAY,THURSDAY,FRIDAY)
     Dates: start: 201407, end: 201407

REACTIONS (6)
  - Hypercholesterolaemia [Unknown]
  - Insomnia [Not Recovered/Not Resolved]
  - Cerebral infarction [Recovering/Resolving]
  - Malignant melanoma [Unknown]
  - Angiopathy [Unknown]
  - Nausea [Unknown]

NARRATIVE: CASE EVENT DATE: 2010
